FAERS Safety Report 6006264-5 (Version None)
Quarter: 2008Q4

REPORT INFORMATION
  Report Type: 
  Country: None (occurrence: None)
  Receive Date: 20081217
  Receipt Date: 20080112
  Transmission Date: 20090506
  Serious: No
  Sender: FDA-Public Use
  Company Number: US-AMGEN-KDL258569

PATIENT
  Sex: Female
  Weight: 86.3 kg

DRUGS (1)
  1. ENBREL [Suspect]
     Indication: RHEUMATOID ARTHRITIS
     Route: 058
     Dates: start: 20071228

REACTIONS (4)
  - BACK PAIN [None]
  - DYSURIA [None]
  - NAUSEA [None]
  - NEPHROLITHIASIS [None]
